FAERS Safety Report 25601017 (Version 1)
Quarter: 2025Q3

REPORT INFORMATION
  Report Type: Spontaneous
  Country: GB (occurrence: GB)
  Receive Date: 20250724
  Receipt Date: 20250724
  Transmission Date: 20251021
  Serious: Yes (Life-Threatening, Hospitalization)
  Sender: BIOTEST
  Company Number: GB-BIOTEST-015817

PATIENT
  Age: 68 Year
  Sex: Male
  Weight: 85.7 kg

DRUGS (1)
  1. YIMMUGO [Suspect]
     Active Substance: HUMAN IMMUNOGLOBULIN G-DIRA
     Indication: Acute motor axonal neuropathy
     Dates: start: 20250715, end: 20250715

REACTIONS (2)
  - Rash [Recovered/Resolved]
  - Off label use [Unknown]

NARRATIVE: CASE EVENT DATE: 20250715
